FAERS Safety Report 22164317 (Version 2)
Quarter: 2023Q2

REPORT INFORMATION
  Report Type: Report from Study
  Country: US (occurrence: US)
  Receive Date: 20230403
  Receipt Date: 20230508
  Transmission Date: 20230721
  Serious: Yes (Hospitalization, Other)
  Sender: FDA-Public Use
  Company Number: US-ABBVIE-4708959

PATIENT
  Age: 79 Year
  Sex: Male

DRUGS (1)
  1. RINVOQ [Suspect]
     Active Substance: UPADACITINIB
     Indication: Product used for unknown indication
     Route: 048
     Dates: start: 20221227

REACTIONS (4)
  - Pneumonia [Recovered/Resolved]
  - Fall [Unknown]
  - Rib fracture [Unknown]
  - Head injury [Unknown]

NARRATIVE: CASE EVENT DATE: 20230101
